FAERS Safety Report 5675462-2 (Version None)
Quarter: 2008Q2

REPORT INFORMATION
  Report Type: 
  Country: None (occurrence: None)
  Receive Date: 20080311
  Receipt Date: 20071019
  Transmission Date: 20081010
  Serious: Yes (Other)
  Sender: FDA-Public Use
  Company Number: PHEH2007US13876

PATIENT
  Age: 42 Year
  Sex: Female

DRUGS (1)
  1. TRILEPTAL [Suspect]
     Indication: BIPOLAR DISORDER
     Dosage: 900 MG, QD, ORAL
     Route: 048
     Dates: start: 20070401

REACTIONS (1)
  - HYPERTENSION [None]
